FAERS Safety Report 9736369 (Version 1)
Quarter: 2013Q4

REPORT INFORMATION
  Report Type: Spontaneous
  Country: CH (occurrence: CH)
  Receive Date: 20131206
  Receipt Date: 20131206
  Transmission Date: 20140711
  Serious: Yes (Life-Threatening, Hospitalization)
  Sender: FDA-Public Use
  Company Number: CH-ROCHE-1311410

PATIENT
  Age: 61 Year
  Sex: Female

DRUGS (1)
  1. AVASTIN [Suspect]
     Indication: SMALL INTESTINE CARCINOMA
     Route: 041
     Dates: start: 2012

REACTIONS (2)
  - Cerebral infarction [Recovering/Resolving]
  - Grand mal convulsion [Recovered/Resolved]
